FAERS Safety Report 21125383 (Version 1)
Quarter: 2022Q3

REPORT INFORMATION
  Report Type: Spontaneous
  Country: IT (occurrence: IT)
  Receive Date: 20220725
  Receipt Date: 20220725
  Transmission Date: 20221027
  Serious: Yes (Other)
  Sender: FDA-Public Use
  Company Number: None

PATIENT
  Age: 8 Year
  Sex: Male

DRUGS (1)
  1. EVEROLIMUS [Suspect]
     Active Substance: EVEROLIMUS
     Indication: Renal hamartoma
     Dosage: 6 MG (CUMULATIVE DOSE:60 MG)
     Route: 048

REACTIONS (5)
  - Arrhythmia [Recovering/Resolving]
  - Nervousness [Recovering/Resolving]
  - Tachycardia [Recovering/Resolving]
  - Aphthous ulcer [Recovering/Resolving]
  - Decreased appetite [Recovering/Resolving]

NARRATIVE: CASE EVENT DATE: 20220107
